FAERS Safety Report 8084708-5 (Version None)
Quarter: 2012Q1

REPORT INFORMATION
  Report Type: 
  Country: None (occurrence: None)
  Receive Date: 20120128
  Receipt Date: 20110311
  Transmission Date: 20120608
  Serious: No
  Sender: FDA-Public Use
  Company Number: US-ABBOTT-11P-163-0710918-00

PATIENT
  Age: 63 Year
  Sex: Female

DRUGS (7)
  1. HUMIRA [Suspect]
     Indication: CROHN'S DISEASE
     Dosage: 80MG SECONDARY LOADING DOSE
     Dates: start: 20110224, end: 20110224
  2. FOSAMAX [Concomitant]
     Indication: OSTEOPOROSIS
  3. NEXIUM [Concomitant]
     Indication: GASTROOESOPHAGEAL REFLUX DISEASE
  4. HUMIRA [Suspect]
  5. MULTI-VITAMIN [Concomitant]
     Indication: PRODUCT USED FOR UNKNOWN INDICATION
     Dosage: DAILY
  6. ENDOCORT [Concomitant]
  7. ENDOCORT [Concomitant]
     Indication: CROHN'S DISEASE

REACTIONS (2)
  - ERYTHEMA [None]
  - URTICARIA [None]
